FAERS Safety Report 4939331-5 (Version None)
Quarter: 2006Q1

REPORT INFORMATION
  Report Type: 
  Country: None (occurrence: None)
  Receive Date: 20060306
  Receipt Date: 20060221
  Transmission Date: 20060701
  Serious: Yes (Disabling)
  Sender: FDA-Public Use
  Company Number: 222359

PATIENT
  Age: 62 Year
  Sex: Female
  Weight: 43 kg

DRUGS (19)
  1. RITUXAN [Suspect]
     Indication: NON-HODGKIN'S LYMPHOMA
     Dosage: 500 MG, INTRAVENOUS
     Route: 042
     Dates: start: 20040818, end: 20041203
  2. DOXORUBICIN HYDROCHLORIDE [Suspect]
     Indication: NON-HODGKIN'S LYMPHOMA
     Dosage: SEE IMAGE
     Route: 042
     Dates: start: 20040729, end: 20040802
  3. ENDOXAN (CYCLOPHOSPHAMIDE) [Suspect]
     Indication: NON-HODGKIN'S LYMPHOMA
     Dosage: SEE IMAGE
     Route: 042
     Dates: start: 20040729, end: 20040802
  4. ENDOXAN (CYCLOPHOSPHAMIDE) [Suspect]
     Indication: NON-HODGKIN'S LYMPHOMA
     Dosage: SEE IMAGE
     Route: 042
     Dates: start: 20040819, end: 20041224
  5. ONCOVIN [Suspect]
     Indication: NON-HODGKIN'S LYMPHOMA
     Dosage: SEE IMAGE
     Route: 042
     Dates: start: 20040729
  6. PREDONINE (PREDNISOLONE, PREDNISOLONE ACETATE, PREDNISOLONE SODIUM SUC [Suspect]
     Indication: NON-HODGKIN'S LYMPHOMA
     Dosage: 100 MG, ORAL
     Route: 048
     Dates: start: 20040729, end: 20041224
  7. POLARAMINE [Concomitant]
  8. BRUFEN (IBUPROFEN) [Concomitant]
  9. KYTRIN (GRANISETRON HYDROCHLORIDE) [Concomitant]
  10. LENDORM [Concomitant]
  11. FAMOTIDINE [Concomitant]
  12. NAUZELIN (DOMPERIDONE) [Concomitant]
  13. MAGNESIUM OXIDE (MAGNESIUM OXIDE) [Concomitant]
  14. PURSENNID (SENNOSIDES) [Concomitant]
  15. AMOBAN (ZOPICLONE) [Concomitant]
  16. OMEPRAZOLE [Concomitant]
  17. SELBEX (TEPRENONE) [Concomitant]
  18. NASEA (JAPAN) (RAMOSETRON HYDROCHLORIDE) [Concomitant]
  19. SEROTONE (AZASETRON HYDROCHLORIDE) [Concomitant]

REACTIONS (3)
  - CHEILITIS [None]
  - NEUROPATHY PERIPHERAL [None]
  - NEUTROPENIA [None]
